FAERS Safety Report 4951436-1 (Version None)
Quarter: 2006Q1

REPORT INFORMATION
  Report Type: 
  Country: None (occurrence: None)
  Receive Date: 20060317
  Receipt Date: 20060310
  Transmission Date: 20060701
  Serious: Yes (Other)
  Sender: FDA-Public Use
  Company Number: 2006030089

PATIENT
  Sex: Female
  Weight: 101.6057 kg

DRUGS (11)
  1. LIPITOR [Suspect]
     Indication: BLOOD CHOLESTEROL INCREASED
     Dosage: 40 MG (40 MG, 1 IN 1 D), ORAL
     Route: 048
  2. CLINDAMYCIN HYDROCHLORIDE [Suspect]
     Indication: ILL-DEFINED DISORDER
  3. PENICILLIN [Suspect]
     Indication: ILL-DEFINED DISORDER
  4. METOCLOPRAMIDE [Concomitant]
  5. PROTONIX [Concomitant]
  6. ACETYLSALICYLIC ACID SRT [Concomitant]
  7. FUROSEMIDE [Concomitant]
  8. VERAPAMIL [Concomitant]
  9. BENICAR [Concomitant]
  10. HUMALOG [Concomitant]
  11. LANTUS [Concomitant]

REACTIONS (6)
  - BLOOD CALCIUM INCREASED [None]
  - BLOOD CHOLESTEROL INCREASED [None]
  - DRUG HYPERSENSITIVITY [None]
  - DYSPHAGIA [None]
  - PARATHYROID GLAND ENLARGEMENT [None]
  - SKIN ULCER [None]
